FAERS Safety Report 17994819 (Version 3)
Quarter: 2021Q2

REPORT INFORMATION
  Report Type: Spontaneous
  Country: US (occurrence: US)
  Receive Date: 20200708
  Receipt Date: 20210621
  Transmission Date: 20210717
  Serious: Yes (Other)
  Sender: FDA-Public Use
  Company Number: US-GILEAD-2020-0479212

PATIENT
  Age: 58 Year
  Sex: Male
  Weight: 83.9 kg

DRUGS (26)
  1. EPZICOM [Concomitant]
     Active Substance: ABACAVIR SULFATE\LAMIVUDINE
  2. NORVIR [Concomitant]
     Active Substance: RITONAVIR
  3. VIREAD [Suspect]
     Active Substance: TENOFOVIR DISOPROXIL FUMARATE
     Dosage: UNK
     Route: 048
     Dates: start: 200503
  4. HARVONI [Concomitant]
     Active Substance: LEDIPASVIR\SOFOSBUVIR
  5. TRAMADOL. [Concomitant]
     Active Substance: TRAMADOL
  6. CENTRUM SILVER +50 [Concomitant]
     Active Substance: MINERALS\VITAMINS
  7. TRUVADA [Suspect]
     Active Substance: EMTRICITABINE\TENOFOVIR DISOPROXIL FUMARATE
     Indication: HIV INFECTION
     Dosage: UNK
     Route: 048
     Dates: start: 200409, end: 200807
  8. ACETAMINOPHEN. [Concomitant]
     Active Substance: ACETAMINOPHEN
  9. KALETRA [Concomitant]
     Active Substance: LOPINAVIR\RITONAVIR
  10. ANDROGEL [Concomitant]
     Active Substance: TESTOSTERONE
  11. INTERFERON [Concomitant]
     Active Substance: INTERFERON
  12. FLOMAX [Concomitant]
     Active Substance: TAMSULOSIN HYDROCHLORIDE
  13. FLUOCINONIDE. [Concomitant]
     Active Substance: FLUOCINONIDE
  14. GABAPENTIN. [Concomitant]
     Active Substance: GABAPENTIN
  15. ZERIT [Concomitant]
     Active Substance: STAVUDINE
  16. VIREAD [Suspect]
     Active Substance: TENOFOVIR DISOPROXIL FUMARATE
     Indication: HIV INFECTION
     Dosage: UNK
     Route: 048
     Dates: start: 200110, end: 201401
  17. PROSCAR [Concomitant]
     Active Substance: FINASTERIDE
  18. EPIVIR [Concomitant]
     Active Substance: LAMIVUDINE
  19. RETROVIR [Concomitant]
     Active Substance: ZIDOVUDINE
  20. SUSTIVA [Concomitant]
     Active Substance: EFAVIRENZ
  21. TRIUMEQ [Concomitant]
     Active Substance: ABACAVIR SULFATE\DOLUTEGRAVIR SODIUM\LAMIVUDINE
  22. VIRAMUNE [Concomitant]
     Active Substance: NEVIRAPINE
  23. FOLIC ACID. [Concomitant]
     Active Substance: FOLIC ACID
  24. REYATAZ [Concomitant]
     Active Substance: ATAZANAVIR SULFATE
  25. THIAMINE. [Concomitant]
     Active Substance: THIAMINE
  26. SELENIUM [Concomitant]
     Active Substance: SELENIUM

REACTIONS (13)
  - Osteonecrosis [Not Recovered/Not Resolved]
  - Bone loss [Not Recovered/Not Resolved]
  - Pain [Unknown]
  - Tooth loss [Not Recovered/Not Resolved]
  - Depression [Unknown]
  - Spinal fracture [Recovered/Resolved]
  - Anxiety [Unknown]
  - Dizziness [Unknown]
  - Osteonecrosis [Unknown]
  - Lower limb fracture [Recovered/Resolved]
  - Bone density decreased [Not Recovered/Not Resolved]
  - Gait disturbance [Unknown]
  - Emotional distress [Unknown]

NARRATIVE: CASE EVENT DATE: 20050607
